FAERS Safety Report 25373079 (Version 2)
Quarter: 2025Q3

REPORT INFORMATION
  Report Type: Report from Study
  Country: US (occurrence: US)
  Receive Date: 20250529
  Receipt Date: 20250803
  Transmission Date: 20251021
  Serious: Yes (Other)
  Sender: ALEXION PHARMACEUTICALS
  Company Number: US-ASTRAZENECA-202505USA008009US

PATIENT
  Age: 5 Year
  Sex: Female
  Weight: 19.048 kg

DRUGS (12)
  1. KANUMA [Suspect]
     Active Substance: SEBELIPASE ALFA
     Indication: Lipidosis
     Dosage: 60 MILLIGRAM, QW
     Dates: start: 20230920
  2. KANUMA [Suspect]
     Active Substance: SEBELIPASE ALFA
     Indication: Lysosomal acid lipase deficiency
  3. FAMOTIDINE [Concomitant]
     Active Substance: FAMOTIDINE
     Route: 065
  4. CETIRIZINE HYDROCHLORIDE [Concomitant]
     Active Substance: CETIRIZINE HYDROCHLORIDE
  5. DIPHENHYDRAMINE [Concomitant]
     Active Substance: DIPHENHYDRAMINE
  6. DIPHENHYDRAMINE HYDROCHLORIDE [Concomitant]
     Active Substance: DIPHENHYDRAMINE HYDROCHLORIDE
  7. HEPARIN [Concomitant]
     Active Substance: HEPARIN SODIUM
  8. LIDOCAINE\PRILOCAINE HYDROCHLORIDE [Concomitant]
     Active Substance: LIDOCAINE\PRILOCAINE HYDROCHLORIDE
  9. SODIUM CHLORIDE [Concomitant]
     Active Substance: SODIUM CHLORIDE
  10. SODIUM CHLORIDE [Concomitant]
     Active Substance: SODIUM CHLORIDE
  11. EPINEPHRINE [Concomitant]
     Active Substance: EPINEPHRINE
  12. DIETARY SUPPLEMENT [Concomitant]
     Active Substance: DIETARY SUPPLEMENT
     Dosage: 6.2 GRAM 300 KCAL/80 GRAM, QD

REACTIONS (21)
  - Urinary retention [Unknown]
  - Adrenal calcification [Unknown]
  - Abdominal pain [Not Recovered/Not Resolved]
  - Fatigue [Unknown]
  - Intra-abdominal calcification [Unknown]
  - Headache [Unknown]
  - Epistaxis [Unknown]
  - Ear infection [Unknown]
  - High density lipoprotein increased [Unknown]
  - Pharyngitis streptococcal [Unknown]
  - Blood albumin decreased [Unknown]
  - Blood triglycerides increased [Unknown]
  - Blood potassium increased [Unknown]
  - Blood glucose decreased [Unknown]
  - Protein total increased [Unknown]
  - Aspartate aminotransferase increased [Unknown]
  - Alanine aminotransferase increased [Unknown]
  - Red cell distribution width decreased [Unknown]
  - Platelet count increased [Unknown]
  - Immature granulocyte count increased [Unknown]
  - Blood urea decreased [Unknown]

NARRATIVE: CASE EVENT DATE: 20231009
